FAERS Safety Report 7989841-1 (Version None)
Quarter: 2011Q4

REPORT INFORMATION
  Report Type: 
  Country: None (occurrence: None)
  Receive Date: 20111219
  Receipt Date: 20110516
  Transmission Date: 20120403
  Serious: No
  Sender: FDA-Public Use
  Company Number: US-ASTRAZENECA-2011SE29945

PATIENT
  Age: 63 Year
  Sex: Male
  Weight: 108.9 kg

DRUGS (2)
  1. CRESTOR [Suspect]
     Indication: BLOOD CHOLESTEROL INCREASED
     Route: 048
     Dates: start: 20110201
  2. CRESTOR [Suspect]
     Route: 048

REACTIONS (4)
  - MUSCULOSKELETAL PAIN [None]
  - BURNING SENSATION [None]
  - DRUG DOSE OMISSION [None]
  - MYALGIA [None]
